FAERS Safety Report 4590583-3 (Version None)
Quarter: 2005Q1

REPORT INFORMATION
  Report Type: 
  Country: None (occurrence: None)
  Receive Date: 20050224
  Receipt Date: 20050217
  Transmission Date: 20050727
  Serious: Yes (Hospitalization)
  Sender: FDA-Public Use
  Company Number: FR-GLAXOSMITHKLINE-B0372105A

PATIENT
  Age: 31 Year
  Sex: Female

DRUGS (1)
  1. ZELITREX [Suspect]
     Indication: HERPES SIMPLEX
     Dosage: 1G PER DAY
     Route: 048
     Dates: start: 20041115, end: 20041119

REACTIONS (5)
  - GENERALISED ERYTHEMA [None]
  - PURPURA [None]
  - RASH [None]
  - RASH GENERALISED [None]
  - SKIN LESION [None]
